FAERS Safety Report 14248351 (Version 1)
Quarter: 2017Q4

REPORT INFORMATION
  Report Type: Spontaneous
  Country: FR (occurrence: FR)
  Receive Date: 20171204
  Receipt Date: 20171204
  Transmission Date: 20180321
  Serious: Yes (Hospitalization)
  Sender: FDA-Public Use
  Company Number: FR-TEVA-2017-FR-828588

PATIENT
  Age: 65 Year
  Sex: Female

DRUGS (12)
  1. COPAXONE [Suspect]
     Active Substance: GLATIRAMER ACETATE
     Indication: RELAPSING-REMITTING MULTIPLE SCLEROSIS
     Dosage: 20 MILLIGRAM/MILLILITERS DAILY;
     Dates: start: 2010, end: 201707
  2. PARACETAMOL [Concomitant]
     Active Substance: ACETAMINOPHEN
     Route: 048
  3. COPAXONE [Suspect]
     Active Substance: GLATIRAMER ACETATE
     Indication: RELAPSING-REMITTING MULTIPLE SCLEROSIS
     Route: 058
     Dates: start: 201707, end: 201709
  4. VESICARE [Concomitant]
     Active Substance: SOLIFENACIN SUCCINATE
     Route: 048
  5. BISOPROLOL (HEMIFUMARATE) [Concomitant]
     Dosage: 2.5 MILLIGRAM DAILY;
     Route: 048
  6. HYDROCHLOROTHIAZIDE. [Concomitant]
     Active Substance: HYDROCHLOROTHIAZIDE
     Dosage: 6.25 MILLIGRAM DAILY;
     Route: 048
  7. IMOVANE 3,75 MG [Concomitant]
     Dosage: 3.75 MILLIGRAM DAILY;
     Route: 048
  8. IBUPROFENE [Concomitant]
     Active Substance: IBUPROFEN
     Route: 048
  9. DIFFU K [Concomitant]
     Active Substance: POTASSIUM CHLORIDE
     Dosage: 600 MILLIGRAM DAILY;
     Route: 048
  10. ABILIFY [Concomitant]
     Active Substance: ARIPIPRAZOLE
  11. DEPAKOTE 125 MG [Concomitant]
     Route: 048
  12. LEVOTHYROX 100 MCG [Concomitant]
     Dosage: 1 DOSAGE FORMS DAILY;
     Route: 048

REACTIONS (1)
  - Embolia cutis medicamentosa [Recovered/Resolved]

NARRATIVE: CASE EVENT DATE: 20170910
